FAERS Safety Report 6084349-5 (Version None)
Quarter: 2009Q1

REPORT INFORMATION
  Report Type: 
  Country: None (occurrence: None)
  Receive Date: 20090217
  Receipt Date: 20090205
  Transmission Date: 20090719
  Serious: Yes (Disabling)
  Sender: FDA-Public Use
  Company Number: 2009AL000815

PATIENT
  Age: 34 Year
  Sex: Female

DRUGS (6)
  1. DICLOFENAC SODIUM DELAYED-RELEASE TABLETS, 75 MG (PUREPAC) (DICLOFENAC [Suspect]
     Indication: INTRAOPERATIVE CARE
     Dosage: 75 MG; IV
     Route: 042
     Dates: start: 20081125, end: 20081125
  2. FENTANYL [Concomitant]
  3. ONDANSETRON [Concomitant]
  4. CYCLIZINE [Concomitant]
  5. PARACETAMOL [Concomitant]
  6. PROPOFOL [Concomitant]

REACTIONS (3)
  - PAIN [None]
  - SWELLING [None]
  - VEIN DISORDER [None]
